FAERS Safety Report 8814402 (Version 2)
Quarter: 2012Q4

REPORT INFORMATION
  Report Type: 
  Country: US (occurrence: US)
  Receive Date: 20120928
  Receipt Date: 20121002
  Transmission Date: 20130627
  Serious: Yes (Hospitalization)
  Sender: FDA-Public Use
  Company Number: PHEH2012US018422

PATIENT
  Sex: Male

DRUGS (2)
  1. EXJADE [Suspect]
     Indication: IRON OVERLOAD
     Dosage: 1500 mg, daily
     Route: 048
  2. VANCOMYCIN [Suspect]

REACTIONS (1)
  - Sickle cell anaemia with crisis [Unknown]
